FAERS Safety Report 5987520-3 (Version None)
Quarter: 2008Q4

REPORT INFORMATION
  Report Type: 
  Country: None (occurrence: None)
  Receive Date: 20081209
  Receipt Date: 20081202
  Transmission Date: 20090506
  Serious: Yes (Death, Hospitalization)
  Sender: FDA-Public Use
  Company Number: FR-WYE-G02631708

PATIENT
  Sex: Male

DRUGS (2)
  1. TORISEL [Suspect]
     Indication: NEOPLASM MALIGNANT
     Dosage: 25 MG EVERY 1 CYC
     Route: 042
     Dates: start: 20080605, end: 20080910
  2. AVASTIN [Suspect]
     Indication: NEOPLASM MALIGNANT
     Dosage: 710 MG EVERY 1 CYC
     Route: 042
     Dates: start: 20080605, end: 20080910

REACTIONS (3)
  - DISEASE PROGRESSION [None]
  - GENERAL PHYSICAL HEALTH DETERIORATION [None]
  - NAUSEA [None]
